FAERS Safety Report 10463011 (Version 2)
Quarter: 2014Q3

REPORT INFORMATION
  Report Type: Spontaneous
  Country: TR (occurrence: TR)
  Receive Date: 20140919
  Receipt Date: 20140919
  Transmission Date: 20150326
  Serious: Yes (Other)
  Sender: FDA-Public Use
  Company Number: TR-ACCORD-025939

PATIENT
  Age: 44 Year
  Sex: Female

DRUGS (3)
  1. FLUOROURACIL. [Suspect]
     Active Substance: FLUOROURACIL
     Indication: LARYNGEAL CANCER STAGE 0
     Dosage: RECEIVED FOR 7 DAYS
  2. CISPLATIN. [Suspect]
     Active Substance: CISPLATIN
     Indication: LARYNGEAL CANCER STAGE 0
  3. TAXOTERE [Suspect]
     Active Substance: DOCETAXEL
     Indication: LARYNGEAL CANCER STAGE 0

REACTIONS (2)
  - Mesenteric artery thrombosis [Recovered/Resolved]
  - Mesenteric vein thrombosis [Recovered/Resolved]
